FAERS Safety Report 8205870-7 (Version None)
Quarter: 2012Q1

REPORT INFORMATION
  Report Type: 
  Country: None (occurrence: None)
  Receive Date: 20120313
  Receipt Date: 20120301
  Transmission Date: 20120608
  Serious: Yes (Hospitalization)
  Sender: FDA-Public Use
  Company Number: US-ELI_LILLY_AND_COMPANY-US201112002435

PATIENT
  Sex: Male

DRUGS (20)
  1. FORTEO [Suspect]
     Dosage: 20 UG, QD
  2. ORENCIA [Concomitant]
     Dosage: UNK, MONTHLY (1/M)
  3. OMEPRAZOLE [Concomitant]
  4. ZYRTEC [Concomitant]
  5. MULTI-VITAMIN [Concomitant]
  6. FINASTERIDE [Concomitant]
  7. TRAMADOL                           /00599201/ [Concomitant]
     Dosage: UNK, PRN
  8. FORTEO [Suspect]
     Indication: OSTEOPOROSIS
     Dosage: 20 UG, QD
     Dates: start: 20110331
  9. LOVAZA [Concomitant]
  10. LEFLUNOMIDE [Concomitant]
  11. ARAVA [Concomitant]
  12. WARFARIN SODIUM [Concomitant]
  13. METOPROLOL TARTRATE [Concomitant]
  14. CALCIUM [Concomitant]
  15. FUROSEMIDE [Concomitant]
  16. PLAQUENIL [Concomitant]
  17. CALCIUM + VITAMIN D [Concomitant]
  18. FORTEO [Suspect]
     Dosage: 20 UG, QD
  19. PREDNISONE TAB [Concomitant]
  20. ASPIRIN [Concomitant]
     Dosage: 81 MG, BID

REACTIONS (19)
  - ATRIAL FIBRILLATION [None]
  - JOINT INSTABILITY [None]
  - AORTIC DILATATION [None]
  - INTERNATIONAL NORMALISED RATIO INCREASED [None]
  - PNEUMONIA [None]
  - AORTIC CALCIFICATION [None]
  - ROTATOR CUFF SYNDROME [None]
  - CONDITION AGGRAVATED [None]
  - FEELING ABNORMAL [None]
  - BLOOD SODIUM DECREASED [None]
  - ASTHMA [None]
  - PROTHROMBIN TIME PROLONGED [None]
  - BLOOD POTASSIUM DECREASED [None]
  - AORTIC DISORDER [None]
  - HIGH DENSITY LIPOPROTEIN INCREASED [None]
  - CARDIAC FAILURE CONGESTIVE [None]
  - ARTHRITIS [None]
  - ATELECTASIS [None]
  - BLOOD CHLORIDE DECREASED [None]
